FAERS Safety Report 17494982 (Version 1)
Quarter: 2020Q1

REPORT INFORMATION
  Report Type: Spontaneous
  Country: US (occurrence: US)
  Receive Date: 20200303
  Receipt Date: 20200303
  Transmission Date: 20200409
  Serious: No
  Sender: FDA-Public Use
  Company Number: US-AMNEAL PHARMACEUTICALS-2019-AMRX-03525

PATIENT
  Age: 61 Year
  Sex: Male

DRUGS (1)
  1. RYTARY [Suspect]
     Active Substance: CARBIDOPA\LEVODOPA
     Indication: PRODUCT USED FOR UNKNOWN INDICATION
     Dosage: UNK (1 OR 2 CAPSULES IN A DAY)
     Route: 048
     Dates: start: 20191217, end: 20191223

REACTIONS (4)
  - Anger [Recovering/Resolving]
  - Abnormal dreams [Recovering/Resolving]
  - Impulse-control disorder [Recovering/Resolving]
  - Binge eating [Recovering/Resolving]

NARRATIVE: CASE EVENT DATE: 20191217
